FAERS Safety Report 23893131 (Version 2)
Quarter: 2025Q2

REPORT INFORMATION
  Report Type: Spontaneous
  Country: US (occurrence: US)
  Receive Date: 20240524
  Receipt Date: 20250620
  Transmission Date: 20250717
  Serious: Yes (Other)
  Sender: ROCHE
  Company Number: US-ROCHE-3424512

PATIENT
  Sex: Female
  Weight: 77 kg

DRUGS (1)
  1. ACTEMRA [Suspect]
     Active Substance: TOCILIZUMAB
     Indication: Psoriatic arthropathy
     Dosage: ACTPEN 162MG/0.9M
     Route: 058
     Dates: start: 202308

REACTIONS (2)
  - Off label use [Unknown]
  - Fall [Unknown]
